FAERS Safety Report 18760931 (Version 2)
Quarter: 2021Q1

REPORT INFORMATION
  Report Type: Report from Study
  Country: AU (occurrence: AU)
  Receive Date: 20210119
  Receipt Date: 20210321
  Transmission Date: 20210419
  Serious: No
  Sender: FDA-Public Use
  Company Number: AU-UCBSA-2021002155

PATIENT
  Sex: Female

DRUGS (1)
  1. ROTIGOTINE PD [Suspect]
     Active Substance: ROTIGOTINE
     Indication: PARKINSON^S DISEASE
     Dosage: 4 MILLIGRAM, ONCE DAILY (QD)
     Route: 062
     Dates: start: 20200922

REACTIONS (1)
  - Device adhesion issue [Unknown]

NARRATIVE: CASE EVENT DATE: 2020
